FAERS Safety Report 10005855 (Version 1)
Quarter: 2014Q1

REPORT INFORMATION
  Report Type: Spontaneous
  Country: GB (occurrence: GB)
  Receive Date: 20140313
  Receipt Date: 20140313
  Transmission Date: 20141002
  Serious: Yes (Other)
  Sender: FDA-Public Use
  Company Number: GB-009507513-1403GBR004732

PATIENT
  Age: 21 Year
  Sex: Male
  Weight: 80 kg

DRUGS (3)
  1. MIRTAZAPINE [Suspect]
     Indication: DEPRESSION
     Dosage: 30 MG, QD
     Route: 048
     Dates: start: 201401, end: 2014
  2. MIRTAZAPINE [Suspect]
     Dosage: 15 MG, QD
     Route: 048
     Dates: start: 20131223, end: 20140105
  3. MIRTAZAPINE [Suspect]
     Dosage: REDUCE DOSE TO 15MG
     Route: 048
     Dates: start: 2014

REACTIONS (2)
  - Altered state of consciousness [Recovered/Resolved]
  - Convulsion [Recovered/Resolved]
